FAERS Safety Report 17682117 (Version 2)
Quarter: 2020Q2

REPORT INFORMATION
  Report Type: Spontaneous
  Country: US (occurrence: US)
  Receive Date: 20200418
  Receipt Date: 20200604
  Transmission Date: 20200714
  Serious: No
  Sender: FDA-Public Use
  Company Number: US-UNITED THERAPEUTICS-UNT-2020-005814

PATIENT
  Sex: Male
  Weight: 78.5 kg

DRUGS (3)
  1. ADCIRCA [Concomitant]
     Active Substance: TADALAFIL
     Indication: PULMONARY ARTERIAL HYPERTENSION
     Dosage: UNK
     Route: 065
  2. REMODULIN [Suspect]
     Active Substance: TREPROSTINIL
     Indication: PULMONARY ARTERIAL HYPERTENSION
     Dosage: UNK, CONTINUING
     Route: 041
     Dates: start: 20181106
  3. REMODULIN [Suspect]
     Active Substance: TREPROSTINIL
     Dosage: 0.130 ?G/KG, CONTINUING
     Route: 041

REACTIONS (4)
  - Contusion [Unknown]
  - Skin atrophy [Unknown]
  - Pain [Unknown]
  - Product adhesion issue [Unknown]
